FAERS Safety Report 5726129-3 (Version None)
Quarter: 2008Q2

REPORT INFORMATION
  Report Type: 
  Country: None (occurrence: None)
  Receive Date: 20080502
  Receipt Date: 20080424
  Transmission Date: 20081010
  Serious: Yes (Other)
  Sender: FDA-Public Use
  Company Number: US-AMGEN-US258802

PATIENT
  Sex: Female

DRUGS (10)
  1. ENBREL [Suspect]
     Indication: RHEUMATOID ARTHRITIS
     Route: 058
     Dates: start: 20071217, end: 20080410
  2. METHOTREXATE [Concomitant]
     Route: 065
  3. PREVACID [Concomitant]
     Route: 065
  4. PERCOCET [Concomitant]
     Route: 065
  5. ACTONEL [Concomitant]
     Route: 065
  6. FLEXERIL [Concomitant]
     Route: 065
  7. FOLIC ACID [Concomitant]
     Route: 065
  8. AMBIEN [Concomitant]
     Route: 065
  9. IBUPROFEN TABLETS [Concomitant]
     Route: 065
  10. CYMBALTA [Concomitant]
     Route: 065

REACTIONS (6)
  - JOINT SWELLING [None]
  - NAUSEA [None]
  - PHARYNGOLARYNGEAL PAIN [None]
  - SINUSITIS [None]
  - THYROIDITIS [None]
  - WEIGHT FLUCTUATION [None]
